FAERS Safety Report 5293050-7 (Version None)
Quarter: 2007Q2

REPORT INFORMATION
  Report Type: 
  Country: None (occurrence: None)
  Receive Date: 20070411
  Receipt Date: 20070327
  Transmission Date: 20071010
  Serious: Yes (Hospitalization)
  Sender: FDA-Public Use
  Company Number: PHBS2007JP05275

PATIENT
  Age: 79 Year
  Sex: Female

DRUGS (4)
  1. LOCHOL [Suspect]
     Indication: HYPERCHOLESTEROLAEMIA
     Dosage: 10 MG/D
     Route: 048
  2. RIZE [Suspect]
     Dosage: 15 MG/D
     Route: 048
  3. MERISLON [Suspect]
     Dosage: 18 MG/D
     Route: 048
  4. THYRADIN [Suspect]
     Dosage: 50 UG/D
     Route: 048
     Dates: start: 20070205, end: 20070315

REACTIONS (10)
  - ALANINE AMINOTRANSFERASE INCREASED [None]
  - ASPARTATE AMINOTRANSFERASE INCREASED [None]
  - BLOOD ALKALINE PHOSPHATASE INCREASED [None]
  - BLOOD BILIRUBIN INCREASED [None]
  - CEREBELLAR ATAXIA [None]
  - GAIT DISTURBANCE [None]
  - JAUNDICE [None]
  - LIVER DISORDER [None]
  - MALAISE [None]
  - STOMACH DISCOMFORT [None]
